FAERS Safety Report 24716547 (Version 1)
Quarter: 2024Q4

REPORT INFORMATION
  Report Type: Report from Study
  Country: US (occurrence: US)
  Receive Date: 20241210
  Receipt Date: 20241210
  Transmission Date: 20250114
  Serious: Yes (Other)
  Sender: MYLAN
  Company Number: US-MYLANLABS-2024M1107541

PATIENT
  Sex: Male

DRUGS (4)
  1. RIFAMPIN [Suspect]
     Active Substance: RIFAMPIN
     Indication: Cholestatic pruritus
     Dosage: UNK
     Route: 065
  2. HYDROXYZINE [Suspect]
     Active Substance: HYDROXYZINE HYDROCHLORIDE
     Indication: Cholestatic pruritus
     Dosage: UNK
     Route: 065
  3. VITAMIN D [Suspect]
     Active Substance: VITAMIN D NOS
     Indication: Hypovitaminosis
     Dosage: 200000 INTERNATIONAL UNIT, QD
     Route: 065
  4. VITAMIN K [Suspect]
     Active Substance: PHYTONADIONE
     Indication: Hypovitaminosis
     Dosage: UNK
     Route: 065

REACTIONS (2)
  - Drug ineffective for unapproved indication [Unknown]
  - Off label use [Unknown]
